FAERS Safety Report 16185579 (Version 2)
Quarter: 2019Q2

REPORT INFORMATION
  Report Type: Report from Study
  Country: JP (occurrence: JP)
  Receive Date: 20190411
  Receipt Date: 20190423
  Transmission Date: 20190711
  Serious: Yes (Death)
  Sender: FDA-Public Use
  Company Number: JP-ACTELION-A-CH2019-189056

PATIENT
  Age: 76 Year
  Sex: Female
  Weight: 53.7 kg

DRUGS (17)
  1. DIART [Concomitant]
     Active Substance: AZOSEMIDE
     Dosage: 45 MG, QD
     Dates: start: 20171018
  2. LUPRAC [Concomitant]
     Active Substance: TORSEMIDE
     Dosage: 4 MG, QD
  3. REBETOL [Concomitant]
     Active Substance: RIBAVIRIN
     Indication: HEPATITIS C
     Dosage: 600 MG, QD
     Dates: start: 20170621, end: 20170906
  4. UPTRAVI [Suspect]
     Active Substance: SELEXIPAG
     Dosage: 0.6 MG, BID
     Route: 048
     Dates: start: 20180601, end: 20181213
  5. VOLIBRIS [Concomitant]
     Active Substance: AMBRISENTAN
     Indication: PULMONARY ARTERIAL HYPERTENSION
     Dosage: 10 MG, QD
     Dates: start: 20171122
  6. VOLIBRIS [Concomitant]
     Active Substance: AMBRISENTAN
     Dosage: 5 MG, QD
     Dates: start: 20130607, end: 20171121
  7. UPTRAVI [Suspect]
     Active Substance: SELEXIPAG
     Dosage: 0.2 MG, BID
     Route: 048
     Dates: start: 20170215, end: 20180308
  8. GASLON [Concomitant]
     Active Substance: IRSOGLADINE MALEATE
     Indication: GASTRITIS
     Dosage: 4 MG, QD
  9. URSO [Concomitant]
     Active Substance: URSODIOL
     Indication: CHOLELITHIASIS
     Dosage: 200 MG, QD
  10. NEXIUM [Concomitant]
     Active Substance: ESOMEPRAZOLE MAGNESIUM
     Dosage: 20 MG, QD
  11. SOVALDI [Concomitant]
     Active Substance: SOFOSBUVIR
     Indication: HEPATITIS C
     Dosage: 400 MG, QD
     Dates: start: 20170621, end: 20170906
  12. UPTRAVI [Suspect]
     Active Substance: SELEXIPAG
     Dosage: 0.4 MG, BID
     Route: 048
     Dates: start: 20180309, end: 20180531
  13. ADCIRCA [Concomitant]
     Active Substance: TADALAFIL
     Indication: PULMONARY ARTERIAL HYPERTENSION
     Dosage: 40 MG, QD
     Dates: start: 20130501
  14. DIART [Concomitant]
     Active Substance: AZOSEMIDE
     Dosage: 30 MG, QD
     Dates: end: 20171017
  15. WARFARIN [Concomitant]
     Active Substance: WARFARIN
     Dosage: 4 MG, QD
     Dates: start: 20100804
  16. ASPARA POTASSIUM [Concomitant]
     Active Substance: POTASSIUM ASPARTATE
     Indication: HYPOKALAEMIA
     Dosage: 3 G, QD
  17. UPTRAVI [Suspect]
     Active Substance: SELEXIPAG
     Indication: PULMONARY ARTERIAL HYPERTENSION
     Dosage: 0.8 MG, BID
     Route: 048
     Dates: start: 20181214

REACTIONS (1)
  - Cardiac failure [Fatal]

NARRATIVE: CASE EVENT DATE: 20190316
